FAERS Safety Report 6663324-3 (Version None)
Quarter: 2010Q2

REPORT INFORMATION
  Report Type: 
  Country: None (occurrence: None)
  Receive Date: 20100401
  Receipt Date: 20100324
  Transmission Date: 20101027
  Serious: Yes (Death)
  Sender: FDA-Public Use
  Company Number: IE-MEDIMMUNE-MEDI-0010377

PATIENT
  Sex: Male

DRUGS (1)
  1. SYNAGIS [Suspect]
     Route: 030
     Dates: start: 20091125, end: 20091125

REACTIONS (1)
  - DEATH [None]
